FAERS Safety Report 7010190-2 (Version None)
Quarter: 2010Q3

REPORT INFORMATION
  Report Type: 
  Country: None (occurrence: None)
  Receive Date: 20100923
  Receipt Date: 20091106
  Transmission Date: 20110219
  Serious: No
  Sender: FDA-Public Use
  Company Number: US-BAUSCH-2009BL005625

PATIENT
  Age: 79 Year
  Sex: Female

DRUGS (3)
  1. ERYTHROCIN 1% [Suspect]
     Indication: EYE INFECTION
     Route: 047
     Dates: start: 20091103
  2. LUMIGAN [Concomitant]
     Indication: GLAUCOMA
  3. ALPHAGAN [Concomitant]
     Indication: GLAUCOMA

REACTIONS (1)
  - VISION BLURRED [None]
